FAERS Safety Report 5351452-4 (Version None)
Quarter: 2007Q2

REPORT INFORMATION
  Report Type: 
  Country: None (occurrence: None)
  Receive Date: 20070521
  Receipt Date: 20070123
  Transmission Date: 20071010
  Serious: No
  Sender: FDA-Public Use
  Company Number: WAES 0701USA00125

PATIENT
  Age: 69 Year
  Sex: Male
  Weight: 98.8842 kg

DRUGS (7)
  1. JANUVIA [Suspect]
     Indication: DIABETES MELLITUS NON-INSULIN-DEPENDENT
     Dosage: 100 MG/DAILY/PO
     Route: 048
     Dates: start: 20061102
  2. BENICAR [Concomitant]
  3. LIPITOR [Concomitant]
  4. LOTREL [Concomitant]
  5. ETODOLAC [Concomitant]
  6. GLYBURIDE [Concomitant]
  7. METFORMIN [Concomitant]

REACTIONS (2)
  - COUGH [None]
  - PHARYNGOLARYNGEAL PAIN [None]
